FAERS Safety Report 5698312-7 (Version None)
Quarter: 2008Q2

REPORT INFORMATION
  Report Type: 
  Country: None (occurrence: None)
  Receive Date: 20080408
  Receipt Date: 20080311
  Transmission Date: 20081010
  Serious: No
  Sender: FDA-Public Use
  Company Number: US-BOEHRINGER INGELHEIM GMBH, GERMANY-2008-BP-03868BP

PATIENT
  Sex: Male

DRUGS (7)
  1. MIRAPEX [Suspect]
     Indication: RESTLESS LEGS SYNDROME
  2. DIPYRIDAMOLE [Concomitant]
  3. CIMETIDINE [Concomitant]
  4. ASPIRIN [Concomitant]
  5. FLOMAX [Concomitant]
  6. FOLIC ACID [Concomitant]
  7. AMBIEN [Concomitant]

REACTIONS (1)
  - DIZZINESS POSTURAL [None]
